FAERS Safety Report 8025363 (Version 2)
Quarter: 2013Q1

REPORT INFORMATION
  Report Type: Spontaneous
  Country: US (occurrence: US)
  Receive Date: 20110707
  Receipt Date: 20130131
  Transmission Date: 20140127
  Serious: Yes (Hospitalization, Other)
  Sender: FDA-Public Use
  Company Number: US-BAXTER-2011BH018128

PATIENT
  Sex: Female

DRUGS (1)
  1. DIANEAL LOW CALCIUM (ULTRABAG) [Suspect]
     Indication: PERITONEAL DIALYSIS
     Route: 033

REACTIONS (8)
  - Impaired healing [Recovered/Resolved]
  - Heart valve incompetence [Unknown]
  - Cardiac valve disease [Unknown]
  - Poor peripheral circulation [Recovered/Resolved]
  - Adverse drug reaction [Recovered/Resolved]
  - Gangrene [Recovered/Resolved]
  - Localised infection [Recovered/Resolved]
  - Wound [Recovered/Resolved]
